FAERS Safety Report 6161120-7 (Version None)
Quarter: 2009Q2

REPORT INFORMATION
  Report Type: 
  Country: None (occurrence: None)
  Receive Date: 20090417
  Receipt Date: 20090417
  Transmission Date: 20091009
  Serious: Yes (Other)
  Sender: FDA-Public Use
  Company Number: None

PATIENT
  Age: 51 Year
  Sex: Female
  Weight: 63.5036 kg

DRUGS (1)
  1. SEROQUEL [Suspect]
     Indication: SLEEP DISORDER THERAPY
     Dosage: 100 MG 2-3 TIMES DAILY
     Dates: start: 20081201, end: 20090401

REACTIONS (1)
  - DRUG HYPERSENSITIVITY [None]
